FAERS Safety Report 8909310 (Version 1)
Quarter: 2012Q4

REPORT INFORMATION
  Report Type: Report from Study
  Country: US (occurrence: US)
  Receive Date: 20121115
  Receipt Date: 20121115
  Transmission Date: 20130627
  Serious: Yes (Other)
  Sender: FDA-Public Use
  Company Number: US-ASTELLAS-2012US011111

PATIENT
  Age: 76 None
  Sex: Female
  Weight: 51 kg

DRUGS (7)
  1. ERLOTINIB TABLET [Suspect]
     Indication: NON-SMALL CELL LUNG CANCER
     Dosage: 100 mg, UID/QD
     Route: 048
     Dates: start: 201210, end: 20121004
  2. ERLOTINIB TABLET [Suspect]
     Dosage: 150 mg, UID/QD
     Route: 048
     Dates: start: 20121006, end: 20121024
  3. ERLOTINIB TABLET [Suspect]
     Dosage: 100 mg, UID/QD
     Route: 048
     Dates: start: 20121030
  4. OXYCONTIN [Concomitant]
     Indication: PAIN
     Dosage: UNK
     Route: 048
  5. ASPIRIN [Concomitant]
     Indication: PRODUCT USED FOR UNKNOWN INDICATION
     Dosage: 81 mg, UID/QD
     Route: 048
  6. DULCOLAX                           /00064401/ [Concomitant]
     Indication: CONSTIPATION
     Dosage: UNK
     Route: 048
  7. MEGACE [Concomitant]
     Indication: DECREASED APPETITE
     Dosage: UNK
     Route: 048

REACTIONS (19)
  - Incorrect dose administered [Unknown]
  - Suicidal ideation [Unknown]
  - Contusion [Not Recovered/Not Resolved]
  - Agitation [Unknown]
  - Confusional state [Recovering/Resolving]
  - Disorientation [Recovering/Resolving]
  - Somnolence [Unknown]
  - Fatigue [Not Recovered/Not Resolved]
  - Rash [Unknown]
  - Diarrhoea [Unknown]
  - Weight decreased [Not Recovered/Not Resolved]
  - Fatigue [Not Recovered/Not Resolved]
  - Decreased appetite [Not Recovered/Not Resolved]
  - Constipation [Not Recovered/Not Resolved]
  - Asthenia [Unknown]
  - Vomiting [Unknown]
  - Nausea [Unknown]
  - Decreased appetite [Unknown]
  - Dizziness [Unknown]
